FAERS Safety Report 5569596-0 (Version None)
Quarter: 2007Q4

REPORT INFORMATION
  Report Type: 
  Country: None (occurrence: None)
  Receive Date: 20071220
  Receipt Date: 20071207
  Transmission Date: 20080405
  Serious: Yes (Other)
  Sender: FDA-Public Use
  Company Number: GB-RANBAXY-2007RR-11983

PATIENT

DRUGS (8)
  1. CODEINE SUL TAB [Suspect]
     Dosage: UNK
     Dates: start: 20020820
  2. IBUPROFEN [Suspect]
     Dosage: UNK
  3. LOFEPRAMINE [Suspect]
     Dosage: UNK
  4. IBUPROFEN [Suspect]
     Dosage: UNK
     Dates: start: 20020820
  5. PAROXETINE HCL [Suspect]
     Indication: PHOBIA
     Dosage: UNK
     Dates: start: 19990901
  6. FLUOXETINE [Concomitant]
     Indication: DEPRESSION
  7. LITHIUM CARBONATE [Concomitant]
  8. METHYLENEDIOXYMETHAMPHETAMINE [Concomitant]

REACTIONS (7)
  - CONSTIPATION [None]
  - DEPRESSION [None]
  - SEXUAL DYSFUNCTION [None]
  - SOCIAL PHOBIA [None]
  - SUICIDAL IDEATION [None]
  - SUICIDE ATTEMPT [None]
  - VISION BLURRED [None]
